FAERS Safety Report 17082531 (Version 1)
Quarter: 2019Q4

REPORT INFORMATION
  Report Type: Spontaneous
  Country: PT (occurrence: PT)
  Receive Date: 20191127
  Receipt Date: 20191127
  Transmission Date: 20200122
  Serious: Yes (Hospitalization, Other)
  Sender: FDA-Public Use
  Company Number: PT-FERRINGPH-2019FE07792

PATIENT
  Age: 48 Year
  Sex: Male

DRUGS (4)
  1. MIRTAZAPINE. [Concomitant]
     Active Substance: MIRTAZAPINE
     Indication: DEPRESSION
     Dosage: 30 MG, 1 TIME DAILY
     Route: 065
  2. BUPROPION. [Concomitant]
     Active Substance: BUPROPION
     Indication: DEPRESSION
     Dosage: 300 MG, 1 TIME DAILY
     Route: 065
  3. HERBAL NOS [Concomitant]
     Active Substance: HERBALS
     Indication: WEIGHT CONTROL
     Route: 065
  4. SODIUM PICOSULFATE, MGO, CITRIC ACID [Suspect]
     Active Substance: ANHYDROUS CITRIC ACID\MAGNESIUM OXIDE\SODIUM PICOSULFATE
     Indication: BOWEL PREPARATION
     Dosage: UNK
     Route: 065

REACTIONS (4)
  - Aggression [Recovered/Resolved]
  - Hyponatraemic coma [Recovered/Resolved]
  - Hypokalaemia [Recovered/Resolved]
  - Blood osmolarity decreased [Recovered/Resolved]
